FAERS Safety Report 9391303 (Version 1)
Quarter: 2013Q3

REPORT INFORMATION
  Report Type: Spontaneous
  Country: VE (occurrence: VE)
  Receive Date: 20130709
  Receipt Date: 20130709
  Transmission Date: 20140515
  Serious: Yes (Other)
  Sender: FDA-Public Use
  Company Number: VE-PFIZER INC-2013201347

PATIENT
  Age: 72 Year
  Sex: Female

DRUGS (1)
  1. CADUET [Suspect]
     Dosage: 5 MG/10 MG, UNK
     Dates: start: 2012

REACTIONS (1)
  - Pelvic neoplasm [Unknown]
